FAERS Safety Report 8478606-2 (Version None)
Quarter: 2012Q2

REPORT INFORMATION
  Report Type: 
  Country: None (occurrence: None)
  Receive Date: 20120629
  Receipt Date: 20120627
  Transmission Date: 20120825
  Serious: Yes (Death, Hospitalization)
  Sender: FDA-Public Use
  Company Number: PHHY2012TR055087

PATIENT
  Age: 41 Year
  Sex: Female

DRUGS (1)
  1. AMOXICILLIN [Suspect]
     Indication: TONSILLITIS

REACTIONS (18)
  - HYPOPHAGIA [None]
  - RESPIRATORY DISTRESS [None]
  - PYREXIA [None]
  - BLISTER [None]
  - METABOLIC DISORDER [None]
  - PSEUDOMONAS INFECTION [None]
  - LIP EROSION [None]
  - MALAISE [None]
  - SYSTEMIC INFLAMMATORY RESPONSE SYNDROME [None]
  - WHITE BLOOD CELL COUNT INCREASED [None]
  - RASH MACULO-PAPULAR [None]
  - CONJUNCTIVITIS [None]
  - PURULENCE [None]
  - SEPSIS [None]
  - TOXIC EPIDERMAL NECROLYSIS [None]
  - PRURITUS [None]
  - PAIN [None]
  - APHTHOUS STOMATITIS [None]
